FAERS Safety Report 5888307-2 (Version None)
Quarter: 2008Q3

REPORT INFORMATION
  Report Type: 
  Country: None (occurrence: None)
  Receive Date: 20080918
  Receipt Date: 20080908
  Transmission Date: 20090109
  Serious: Yes (Other)
  Sender: FDA-Public Use
  Company Number: GB-ALLERGAN-0811229US

PATIENT
  Sex: Male

DRUGS (4)
  1. TIMOLOL MALEATE SOL UNSPECIFID [Suspect]
     Indication: DRUG USE FOR UNKNOWN INDICATION
  2. DORZOLAMIDE [Suspect]
  3. LATANOPROST [Suspect]
  4. PILOCARPINE [Suspect]

REACTIONS (4)
  - HYPHAEMA [None]
  - INTRAOCULAR PRESSURE INCREASED [None]
  - IRIDOCYCLITIS [None]
  - VISUAL ACUITY REDUCED [None]
